FAERS Safety Report 17746909 (Version 1)
Quarter: 2020Q2

REPORT INFORMATION
  Report Type: Report from Study
  Country: US (occurrence: US)
  Receive Date: 20200505
  Receipt Date: 20200505
  Transmission Date: 20200714
  Serious: Yes (Other)
  Sender: FDA-Public Use
  Company Number: US-BAYER-2020-071031

PATIENT
  Sex: Male

DRUGS (4)
  1. NASACORT [Concomitant]
     Active Substance: TRIAMCINOLONE ACETONIDE
  2. AFRIN [Suspect]
     Active Substance: OXYMETAZOLINE
     Indication: PARANASAL SINUS DISCOMFORT
  3. FLONASE [Concomitant]
     Active Substance: FLUTICASONE PROPIONATE
  4. AFRIN [Suspect]
     Active Substance: OXYMETAZOLINE
     Indication: SINUS CONGESTION
     Dosage: UNK

REACTIONS (1)
  - Drug dependence [Unknown]
